FAERS Safety Report 14797777 (Version 5)
Quarter: 2018Q2

REPORT INFORMATION
  Report Type: Spontaneous
  Country: CA (occurrence: CA)
  Receive Date: 20180424
  Receipt Date: 20180625
  Transmission Date: 20180711
  Serious: Yes (Hospitalization, Other)
  Sender: FDA-Public Use
  Company Number: CA-009507513-1804CAN007047

PATIENT
  Age: 70 Year
  Sex: Male

DRUGS (1)
  1. SINEMET [Suspect]
     Active Substance: CARBIDOPA\LEVODOPA
     Indication: PARKINSON^S DISEASE
     Dosage: TOTAL DAILY DOSE OF LEVODOPA 1200 MG AND CARBIDOPA 300 MG
     Route: 048

REACTIONS (9)
  - Orthostatic hypotension [Recovering/Resolving]
  - Fall [Unknown]
  - Anxiety [Recovered/Resolved]
  - Delirium [Recovering/Resolving]
  - Suicidal ideation [Recovered/Resolved]
  - Confusional state [Recovering/Resolving]
  - Hallucination [Recovered/Resolved]
  - Constipation [Recovered/Resolved]
  - Insomnia [Recovered/Resolved]
